FAERS Safety Report 21131038 (Version 2)
Quarter: 2022Q3

REPORT INFORMATION
  Report Type: Spontaneous
  Country: IT (occurrence: IT)
  Receive Date: 20220726
  Receipt Date: 20220726
  Transmission Date: 20221027
  Serious: Yes (Hospitalization, Other)
  Sender: FDA-Public Use
  Company Number: IT-GILEAD-2022-0587973

PATIENT
  Age: 44 Year
  Sex: Male

DRUGS (8)
  1. ATORVASTATIN CALCIUM [Interacting]
     Active Substance: ATORVASTATIN CALCIUM
     Indication: Myocardial infarction
     Dosage: 20 MG
     Route: 065
  2. ATORVASTATIN CALCIUM [Interacting]
     Active Substance: ATORVASTATIN CALCIUM
     Dosage: 80 MG
     Route: 065
  3. VEMLIDY [Interacting]
     Active Substance: TENOFOVIR ALAFENAMIDE FUMARATE
     Dosage: UNK
     Route: 065
  4. CLOPIDOGREL [Interacting]
     Active Substance: CLOPIDOGREL BISULFATE
     Indication: Myocardial infarction
     Dosage: UNK
     Route: 065
  5. ETRAVIRINE [Interacting]
     Active Substance: ETRAVIRINE
     Indication: HIV infection
     Dosage: UNK
     Route: 065
  6. DOLUTEGRAVIR [Interacting]
     Active Substance: DOLUTEGRAVIR
     Indication: HIV infection
     Dosage: UNK
     Route: 065
  7. TICAGRELOR [Interacting]
     Active Substance: TICAGRELOR
     Indication: Myocardial infarction
     Dosage: UNK
     Route: 065
  8. DARUNAVIR [Interacting]
     Active Substance: DARUNAVIR
     Indication: HIV infection
     Dosage: UNK
     Route: 065

REACTIONS (3)
  - Acute myocardial infarction [Unknown]
  - Drug interaction [Unknown]
  - COVID-19 [Unknown]
